FAERS Safety Report 16841775 (Version 11)
Quarter: 2020Q4

REPORT INFORMATION
  Report Type: Report from Study
  Country: GB (occurrence: GB)
  Receive Date: 20190923
  Receipt Date: 20201122
  Transmission Date: 20210113
  Serious: Yes (Hospitalization, Other)
  Sender: FDA-Public Use
  Company Number: PHHY2019GB152381

PATIENT
  Sex: Female

DRUGS (3)
  1. SANDOSTATIN LAR DEPOT [Suspect]
     Active Substance: OCTREOTIDE ACETATE
     Indication: NEUROENDOCRINE TUMOUR
     Dosage: 30 MG, Q4W
     Route: 030
  2. SANDOSTATIN LAR DEPOT [Suspect]
     Active Substance: OCTREOTIDE ACETATE
     Dosage: 30 MG, Q4W
     Route: 030
  3. SANDOSTATIN LAR DEPOT [Suspect]
     Active Substance: OCTREOTIDE ACETATE
     Dosage: 30 MG, Q4W
     Route: 030

REACTIONS (36)
  - Faecaloma [Unknown]
  - Hepatic infection [Unknown]
  - Hepatic neoplasm [Unknown]
  - Pain in extremity [Unknown]
  - Weight decreased [Unknown]
  - Hypersomnia [Unknown]
  - Arthralgia [Not Recovered/Not Resolved]
  - Temporomandibular joint syndrome [Unknown]
  - Mouth ulceration [Unknown]
  - Speech disorder [Unknown]
  - Abdominal discomfort [Unknown]
  - Dyspnoea [Unknown]
  - Fibrosis [Unknown]
  - Panic attack [Unknown]
  - Abdominal pain [Unknown]
  - Fatigue [Unknown]
  - Needle issue [Unknown]
  - Sensory disturbance [Unknown]
  - Back pain [Not Recovered/Not Resolved]
  - Cholelithiasis [Unknown]
  - Feeling hot [Unknown]
  - Anal incontinence [Unknown]
  - Diverticulitis [Unknown]
  - Tremor [Unknown]
  - Pain [Unknown]
  - Disorientation [Unknown]
  - Intervertebral disc protrusion [Unknown]
  - Headache [Unknown]
  - Injection site discomfort [Unknown]
  - Angina pectoris [Recovered/Resolved]
  - Malaise [Unknown]
  - Flushing [Unknown]
  - Facial pain [Unknown]
  - Swollen tongue [Unknown]
  - Decreased appetite [Unknown]
  - Oral candidiasis [Unknown]
